FAERS Safety Report 7329837-6 (Version None)
Quarter: 2011Q1

REPORT INFORMATION
  Report Type: 
  Country: None (occurrence: None)
  Receive Date: 20110303
  Receipt Date: 20110218
  Transmission Date: 20110831
  Serious: Yes (Hospitalization, Other)
  Sender: FDA-Public Use
  Company Number: US-ELI_LILLY_AND_COMPANY-US201102005773

PATIENT
  Age: 42 Year
  Sex: Female

DRUGS (9)
  1. PRAVACHOL [Concomitant]
     Dosage: 40 MG, UNK
  2. CYMBALTA [Suspect]
     Dosage: 60 MG, UNK
     Dates: start: 20080201
  3. PRILOSEC [Concomitant]
     Dosage: 40 MG, UNK
  4. PERCOCET [Concomitant]
     Dosage: UNK, AS NEEDED
  5. FENTANYL [Concomitant]
  6. CLARITIN [Concomitant]
  7. NEURONTIN [Concomitant]
  8. VESICARE [Concomitant]
  9. CYMBALTA [Suspect]
     Dosage: 120 MG, UNK
     Dates: start: 20080701, end: 20101001

REACTIONS (2)
  - HEPATIC FAILURE [None]
  - RENAL FAILURE [None]
